FAERS Safety Report 17098081 (Version 1)
Quarter: 2019Q4

REPORT INFORMATION
  Report Type: Spontaneous
  Country: US (occurrence: US)
  Receive Date: 20191202
  Receipt Date: 20191202
  Transmission Date: 20200122
  Serious: Yes (Other)
  Sender: FDA-Public Use
  Company Number: US-PFIZER INC-2019514454

PATIENT
  Age: 39 Year
  Sex: Female
  Weight: 121 kg

DRUGS (3)
  1. TOVIAZ [Suspect]
     Active Substance: FESOTERODINE FUMARATE
     Indication: URINARY TRACT INFECTION
  2. TOVIAZ [Suspect]
     Active Substance: FESOTERODINE FUMARATE
     Indication: HAEMATURIA
     Dosage: 4 MG, 1X/DAY
     Route: 048
     Dates: start: 20191112, end: 20191118
  3. TOVIAZ [Suspect]
     Active Substance: FESOTERODINE FUMARATE
     Indication: VULVOVAGINAL PAIN

REACTIONS (8)
  - Bladder pain [Unknown]
  - Product use in unapproved indication [Unknown]
  - Visual impairment [Unknown]
  - Pelvic pain [Unknown]
  - Off label use [Unknown]
  - Micturition urgency [Unknown]
  - Cystitis interstitial [Unknown]
  - Uterine leiomyoma [Recovering/Resolving]
